FAERS Safety Report 14149204 (Version 1)
Quarter: 2017Q4

REPORT INFORMATION
  Report Type: Spontaneous
  Country: US (occurrence: None)
  Receive Date: 20171101
  Receipt Date: 20171101
  Transmission Date: 20180321
  Serious: No
  Sender: FDA-Public Use
  Company Number: None

PATIENT
  Age: 90 Year
  Sex: Male
  Weight: 56.7 kg

DRUGS (3)
  1. AMLODIPINE [Suspect]
     Active Substance: AMLODIPINE BESYLATE
     Indication: HYPERTENSION
     Route: 048
     Dates: start: 20170807, end: 20171011
  2. ATENOLOL/CHLORTHALIDONE [Concomitant]
     Active Substance: ATENOLOL\CHLORTHALIDONE
  3. ENALAPRIL [Concomitant]
     Active Substance: ENALAPRIL

REACTIONS (2)
  - Vision blurred [None]
  - Visual impairment [None]

NARRATIVE: CASE EVENT DATE: 20170807
